FAERS Safety Report 8231209-7 (Version None)
Quarter: 2012Q1

REPORT INFORMATION
  Report Type: 
  Country: None (occurrence: None)
  Receive Date: 20120323
  Receipt Date: 20120323
  Transmission Date: 20120608
  Serious: Yes (Hospitalization)
  Sender: FDA-Public Use
  Company Number: None

PATIENT
  Age: 23 Year
  Sex: Male
  Weight: 70 kg

DRUGS (2)
  1. LARIAM [Suspect]
     Indication: MALARIA PROPHYLAXIS
     Dosage: 1 TABLET
     Route: 048
  2. LARIAM [Suspect]
     Indication: MALARIA PROPHYLAXIS
     Dosage: 1 TABLET
     Route: 048
     Dates: start: 19950601, end: 19960901

REACTIONS (4)
  - ROAD TRAFFIC ACCIDENT [None]
  - DRUG DEPENDENCE [None]
  - PSYCHOTIC DISORDER [None]
  - FEELING ABNORMAL [None]
